FAERS Safety Report 21096634 (Version 1)
Quarter: 2022Q3

REPORT INFORMATION
  Report Type: Spontaneous
  Country: FR (occurrence: FR)
  Receive Date: 20220718
  Receipt Date: 20220718
  Transmission Date: 20221027
  Serious: Yes (Other)
  Sender: FDA-Public Use
  Company Number: None

PATIENT
  Age: 41 Year
  Sex: Female

DRUGS (4)
  1. SERTRALINE HYDROCHLORIDE [Suspect]
     Active Substance: SERTRALINE HYDROCHLORIDE
     Dosage: UNK
  2. DIAZEPAM [Suspect]
     Active Substance: DIAZEPAM
     Dosage: UNK
  3. OXYBATE [Suspect]
     Active Substance: OXYBATE
     Dosage: UNK
  4. OXAZEPAM [Suspect]
     Active Substance: OXAZEPAM
     Dosage: UNK

REACTIONS (2)
  - Victim of chemical submission [Recovered/Resolved]
  - Wound [Recovered/Resolved]
